FAERS Safety Report 8259177-2 (Version None)
Quarter: 2012Q2

REPORT INFORMATION
  Report Type: 
  Country: None (occurrence: None)
  Receive Date: 20120404
  Receipt Date: 20120326
  Transmission Date: 20120825
  Serious: Yes (Disabling, Other)
  Sender: FDA-Public Use
  Company Number: NO-ASTRAZENECA-2012SE18256

PATIENT
  Age: 56 Year
  Sex: Male

DRUGS (2)
  1. XYLOCAINE W/ EPINEPHRENE [Suspect]
     Indication: LOCAL ANAESTHESIA
     Dosage: 1-3 ML IN THE SKIN AREA TO BE TREATED WITH LIGHT
     Route: 058
     Dates: start: 20080528, end: 20080528
  2. MARCAINE [Suspect]
     Route: 051
     Dates: start: 20080528, end: 20080528

REACTIONS (2)
  - EYELID DISORDER [None]
  - NEUROPATHY PERIPHERAL [None]
